FAERS Safety Report 15819675 (Version 6)
Quarter: 2019Q1

REPORT INFORMATION
  Report Type: Report from Study
  Country: CH (occurrence: CH)
  Receive Date: 20190114
  Receipt Date: 20190225
  Transmission Date: 20190417
  Serious: Yes (Hospitalization)
  Sender: FDA-Public Use
  Company Number: CH-ROCHE-2242489

PATIENT
  Age: 50 Year
  Sex: Male
  Weight: 78 kg

DRUGS (6)
  1. NOVALGIN (SWITZERLAND) [Concomitant]
     Active Substance: DIPYRONE
  2. TALIMOGENE LAHERPAREPVEC [Suspect]
     Active Substance: TALIMOGENE LAHERPAREPVEC
     Indication: COLORECTAL CANCER
     Route: 026
     Dates: start: 20181115
  3. CORTISONE [Concomitant]
     Active Substance: CORTISONE\HYDROCORTISONE
     Route: 065
     Dates: start: 20190104
  4. PREDNISON [Concomitant]
     Active Substance: PREDNISONE
     Route: 065
     Dates: start: 20190104, end: 20190106
  5. ATEZOLIZUMAB. [Suspect]
     Active Substance: ATEZOLIZUMAB
     Indication: COLORECTAL CANCER
     Route: 042
     Dates: start: 20181115
  6. PANTOPRAZOL [Concomitant]
     Active Substance: PANTOPRAZOLE SODIUM
     Route: 065
     Dates: start: 20181030

REACTIONS (1)
  - Colon cancer [Not Recovered/Not Resolved]

NARRATIVE: CASE EVENT DATE: 20190107
